FAERS Safety Report 8901556 (Version 1)
Quarter: 2012Q4

REPORT INFORMATION
  Report Type: 
  Country: US (occurrence: US)
  Receive Date: 20121108
  Receipt Date: 20121108
  Transmission Date: 20130627
  Serious: Yes (Other)
  Sender: FDA-Public Use
  Company Number: PHHY2012US102315

PATIENT
  Age: 77 Year
  Sex: Female

DRUGS (3)
  1. BUFFERIN [Suspect]
     Indication: RHEUMATOID ARTHRITIS
     Dosage: 8 DF, daily
     Route: 048
  2. BUFFERIN [Suspect]
     Dosage: 6 DF, daily
     Route: 048
     Dates: end: 2011
  3. INSULIN [Concomitant]

REACTIONS (8)
  - Hepatitis A [Not Recovered/Not Resolved]
  - Thyroid disorder [Not Recovered/Not Resolved]
  - Urinary tract infection [Recovered/Resolved]
  - Arthritis [Not Recovered/Not Resolved]
  - Insomnia [Not Recovered/Not Resolved]
  - Malaise [Recovered/Resolved]
  - General physical health deterioration [Recovered/Resolved]
  - Incorrect drug administration duration [Unknown]
